FAERS Safety Report 20738736 (Version 2)
Quarter: 2022Q2

REPORT INFORMATION
  Report Type: Report from Study
  Country: US (occurrence: US)
  Receive Date: 20220422
  Receipt Date: 20220511
  Transmission Date: 20220721
  Serious: Yes (Other)
  Sender: FDA-Public Use
  Company Number: US-HORIZON THERAPEUTICS-HZN-2022-002419

PATIENT

DRUGS (3)
  1. TEPEZZA [Suspect]
     Active Substance: TEPROTUMUMAB-TRBW
     Indication: Endocrine ophthalmopathy
     Dosage: 1ST INFUSION
     Route: 042
     Dates: start: 20220204
  2. TEPEZZA [Suspect]
     Active Substance: TEPROTUMUMAB-TRBW
     Dosage: 2ND INFUSION
     Route: 042
  3. METHIMAZOLE [Concomitant]
     Active Substance: METHIMAZOLE
     Dosage: 10 MG, 2D/WEEK

REACTIONS (4)
  - Diabetes mellitus [Not Recovered/Not Resolved]
  - Fatigue [Not Recovered/Not Resolved]
  - Lacrimation increased [Not Recovered/Not Resolved]
  - Condition aggravated [Not Recovered/Not Resolved]
